FAERS Safety Report 23513947 (Version 2)
Quarter: 2024Q1

REPORT INFORMATION
  Report Type: Report from Study
  Country: JP (occurrence: None)
  Receive Date: 20240212
  Receipt Date: 20240214
  Transmission Date: 20240409
  Serious: Yes (Death, Hospitalization)
  Sender: FDA-Public Use
  Company Number: 2020SE39890

PATIENT
  Age: 51 Year
  Sex: Male
  Weight: 69 kg

DRUGS (3)
  1. IMFINZI [Suspect]
     Active Substance: DURVALUMAB
     Indication: Non-small cell lung cancer
     Route: 042
     Dates: start: 20191224, end: 20200210
  2. GIMERACIL\OTERACIL\TEGAFUR [Suspect]
     Active Substance: GIMERACIL\OTERACIL POTASSIUM\TEGAFUR
     Indication: Non-small cell lung cancer
     Route: 042
     Dates: start: 20200817, end: 20210117
  3. DOCETAXEL [Suspect]
     Active Substance: DOCETAXEL\DOCETAXEL ANHYDROUS
     Indication: Non-small cell lung cancer
     Route: 042
     Dates: start: 20210308, end: 20210328

REACTIONS (4)
  - Pneumonitis [Recovered/Resolved]
  - Radiation pneumonitis [Recovered/Resolved with Sequelae]
  - Performance status decreased [Unknown]
  - Death [Fatal]

NARRATIVE: CASE EVENT DATE: 20200127
